FAERS Safety Report 8354058 (Version 4)
Quarter: 2012Q4

REPORT INFORMATION
  Report Type: Report from Study
  Country: BR (occurrence: BR)
  Receive Date: 20120125
  Receipt Date: 20121126
  Transmission Date: 20130627
  Serious: Yes (Hospitalization, Other)
  Sender: FDA-Public Use
  Company Number: BR-ROCHE-1031852

PATIENT
  Sex: Female
  Weight: 80 kg

DRUGS (9)
  1. TOCILIZUMAB [Suspect]
     Indication: RHEUMATOID ARTHRITIS
     Route: 042
     Dates: start: 20100601, end: 20110601
  2. ABLOK [Concomitant]
     Route: 065
  3. PRESSAT [Concomitant]
     Route: 065
  4. PRELONE [Concomitant]
  5. FLUOXETINE [Concomitant]
  6. TRAMAL [Concomitant]
  7. PANTOPRAZOLE [Concomitant]
  8. SOLOSA [Concomitant]
  9. PANTOPRAZOLE [Concomitant]

REACTIONS (6)
  - Angina pectoris [Unknown]
  - Wound [Recovering/Resolving]
  - Fall [Unknown]
  - Ulcer [Not Recovered/Not Resolved]
  - Cardiac disorder [Unknown]
  - Arrhythmia [Unknown]
